FAERS Safety Report 23379683 (Version 2)
Quarter: 2024Q1

REPORT INFORMATION
  Report Type: Report from Study
  Country: US (occurrence: US)
  Receive Date: 20240108
  Receipt Date: 20240128
  Transmission Date: 20240409
  Serious: Yes (Other)
  Sender: FDA-Public Use
  Company Number: US-ABBVIE-5574417

PATIENT
  Sex: Male

DRUGS (1)
  1. VENCLEXTA [Suspect]
     Active Substance: VENETOCLAX
     Indication: Chronic lymphocytic leukaemia
     Route: 048
     Dates: end: 20230822

REACTIONS (3)
  - Bone marrow failure [Unknown]
  - Haemoglobin abnormal [Unknown]
  - Platelet count abnormal [Unknown]
